FAERS Safety Report 9283939 (Version 1)
Quarter: 2013Q2

REPORT INFORMATION
  Report Type: Spontaneous
  Country: US (occurrence: US)
  Receive Date: 20130510
  Receipt Date: 20130510
  Transmission Date: 20140414
  Serious: Yes (Death)
  Sender: FDA-Public Use
  Company Number: US-COVIDIEN/TYCO HEALTHCARE/MALLINCKRODT-T201301105

PATIENT
  Age: 60 Year
  Sex: Female
  Weight: 71.66 kg

DRUGS (7)
  1. FENTANYL TRANSDERMAL SYSTEM [Suspect]
     Indication: ARTHRALGIA
     Dosage: 100 MCG/HR, Q 3 DAYS
     Route: 062
     Dates: start: 20130218
  2. PERCOCET                           /00867901/ [Concomitant]
     Indication: BREAKTHROUGH PAIN
     Dosage: 10/325MG, 1/2-1 TAB, TID
  3. XANAX [Concomitant]
     Indication: PANIC ATTACK
     Dosage: 1 MG, QD
  4. LOSARTAN [Concomitant]
     Indication: HYPERTENSION
     Dosage: UNK
  5. HYDROCHLOROTHIAZIDE [Concomitant]
     Indication: HYPERTENSION
     Dosage: 12.5 MG
  6. FENTANYL [Concomitant]
     Indication: OSTEOARTHRITIS
     Dosage: 100 MCG/HR, Q 3 DAYS
     Dates: start: 2011, end: 201302
  7. FENTANYL [Concomitant]
     Indication: SPINAL PAIN

REACTIONS (4)
  - Chest discomfort [Recovering/Resolving]
  - Respiratory rate increased [Recovering/Resolving]
  - Blood pressure abnormal [Recovered/Resolved]
  - Fatigue [Recovering/Resolving]
